FAERS Safety Report 20024025 (Version 2)
Quarter: 2023Q1

REPORT INFORMATION
  Report Type: Spontaneous
  Country: CA (occurrence: CA)
  Receive Date: 20211102
  Receipt Date: 20230303
  Transmission Date: 20230417
  Serious: Yes (Other)
  Sender: FDA-Public Use
  Company Number: CA-PFIZER INC-202101401790

PATIENT
  Age: 45 Year
  Sex: Male

DRUGS (6)
  1. XELJANZ [Suspect]
     Active Substance: TOFACITINIB CITRATE
     Indication: Colitis ulcerative
     Dosage: CYCLIC; 1 EVERY 2 DAYS
     Route: 065
  2. XELJANZ [Suspect]
     Active Substance: TOFACITINIB CITRATE
     Dosage: 5 MG, 2X/DAY
     Route: 048
     Dates: start: 20190912
  3. XELJANZ [Suspect]
     Active Substance: TOFACITINIB CITRATE
     Dosage: 10 MG, DAILY
     Route: 048
     Dates: start: 202006
  4. REMICADE [Suspect]
     Active Substance: INFLIXIMAB
     Route: 065
  5. HUMIRA [Suspect]
     Active Substance: ADALIMUMAB
     Route: 058
  6. PANTOPRAZOLE [Concomitant]
     Active Substance: PANTOPRAZOLE

REACTIONS (13)
  - Abdominal pain [Not Recovered/Not Resolved]
  - Acne [Unknown]
  - Condition aggravated [Unknown]
  - Constipation [Unknown]
  - Fistula [Unknown]
  - Frequent bowel movements [Not Recovered/Not Resolved]
  - General physical health deterioration [Unknown]
  - Paranoid personality disorder [Unknown]
  - Proctalgia [Recovered/Resolved]
  - Rectal abscess [Recovering/Resolving]
  - Rectal haemorrhage [Unknown]
  - Speech disorder [Unknown]
  - Vein disorder [Unknown]

NARRATIVE: CASE EVENT DATE: 20200601
